FAERS Safety Report 17428318 (Version 1)
Quarter: 2020Q1

REPORT INFORMATION
  Report Type: Spontaneous
  Country: US (occurrence: US)
  Receive Date: 20200218
  Receipt Date: 20200218
  Transmission Date: 20200409
  Serious: No
  Sender: FDA-Public Use
  Company Number: US-GW PHARMA-202002USGW00527

PATIENT

DRUGS (1)
  1. EPIDIOLEX [Suspect]
     Active Substance: CANNABIDIOL
     Indication: LENNOX-GASTAUT SYNDROME
     Dosage: 1000 MILLIGRAM, QD (4ML EVERY MORNING, 2ML IN THE AFTERNOON, AND 4ML EVERY EVENING)
     Route: 048
     Dates: start: 20190402

REACTIONS (1)
  - Diarrhoea [Not Recovered/Not Resolved]
